FAERS Safety Report 15253869 (Version 1)
Quarter: 2018Q3

REPORT INFORMATION
  Report Type: Spontaneous
  Country: DE (occurrence: DE)
  Receive Date: 20180808
  Receipt Date: 20180808
  Transmission Date: 20181010
  Serious: Yes (Other)
  Sender: FDA-Public Use
  Company Number: DE-ABBVIE-18K-062-2443641-00

PATIENT
  Age: 68 Year
  Sex: Male

DRUGS (1)
  1. VENETOCLAX. [Suspect]
     Active Substance: VENETOCLAX
     Indication: CHRONIC LYMPHOCYTIC LEUKAEMIA
     Route: 048
     Dates: start: 20180108, end: 20180524

REACTIONS (3)
  - Lymphadenopathy [Recovered/Resolved]
  - Renal failure [Recovered/Resolved]
  - Page kidney [Recovered/Resolved]

NARRATIVE: CASE EVENT DATE: 201801
